FAERS Safety Report 17359744 (Version 2)
Quarter: 2020Q1

REPORT INFORMATION
  Report Type: Report from Study
  Country: JP (occurrence: JP)
  Receive Date: 20200203
  Receipt Date: 20200313
  Transmission Date: 20200409
  Serious: Yes (Death, Other)
  Sender: FDA-Public Use
  Company Number: JP-ROCHE-2532061

PATIENT
  Age: 62 Year
  Sex: Female

DRUGS (1)
  1. ENTRECTINIB [Suspect]
     Active Substance: ENTRECTINIB
     Indication: FALLOPIAN TUBE CANCER
     Route: 048
     Dates: start: 20191219

REACTIONS (6)
  - Disease progression [Fatal]
  - Muscular weakness [Unknown]
  - Renal impairment [Unknown]
  - Oral disorder [Unknown]
  - Taste disorder [Unknown]
  - Dizziness [Unknown]

NARRATIVE: CASE EVENT DATE: 20191219
